FAERS Safety Report 22790349 (Version 2)
Quarter: 2025Q1

REPORT INFORMATION
  Report Type: Spontaneous
  Country: US (occurrence: US)
  Receive Date: 20230805
  Receipt Date: 20250114
  Transmission Date: 20250408
  Serious: No
  Sender: CHATTEM
  Company Number: US-SA-SAC20220506000631

PATIENT
  Sex: Female

DRUGS (1)
  1. GOLD BOND MEDICATED ORIGINAL STRENGTH BODY [Suspect]
     Active Substance: MENTHOL
     Indication: Product used for unknown indication
     Route: 065

REACTIONS (2)
  - Respiratory tract irritation [Unknown]
  - Exposure via inhalation [Unknown]
